FAERS Safety Report 9311333 (Version 1)
Quarter: 2013Q2

REPORT INFORMATION
  Report Type: Spontaneous
  Country: US (occurrence: US)
  Receive Date: 20130528
  Receipt Date: 20130528
  Transmission Date: 20140414
  Serious: Yes (Hospitalization)
  Sender: FDA-Public Use
  Company Number: US-PFIZER INC-2013161107

PATIENT
  Age: 77 Year
  Sex: Female

DRUGS (2)
  1. HALCION [Suspect]
     Indication: SLEEP DISORDER
     Dosage: 5 MG, DAILY
  2. TENORMIN [Concomitant]
     Indication: HYPERTENSION
     Dosage: UNK, 2X/DAY

REACTIONS (2)
  - Arthropathy [Unknown]
  - Drug ineffective [Unknown]
